FAERS Safety Report 17402243 (Version 1)
Quarter: 2020Q1

REPORT INFORMATION
  Report Type: Spontaneous
  Country: US (occurrence: US)
  Receive Date: 20200210
  Receipt Date: 20200210
  Transmission Date: 20200409
  Serious: No
  Sender: FDA-Public Use
  Company Number: None

PATIENT
  Age: 30 Year
  Sex: Female

DRUGS (2)
  1. PROGESTERONE. [Suspect]
     Active Substance: PROGESTERONE
     Indication: INFERTILITY
     Route: 067
     Dates: start: 20191115
  2. ESTRADIOL. [Suspect]
     Active Substance: ESTRADIOL
     Indication: INFERTILITY
     Route: 048
     Dates: start: 20191115

REACTIONS (1)
  - Pregnancy [None]

NARRATIVE: CASE EVENT DATE: 20191227
